FAERS Safety Report 8910664 (Version 1)
Quarter: 2012Q4

REPORT INFORMATION
  Report Type: Spontaneous
  Country: GB (occurrence: None)
  Receive Date: 20121108
  Receipt Date: 20121108
  Transmission Date: 20130627
  Serious: Yes (Life-Threatening, Hospitalization)
  Sender: FDA-Public Use
  Company Number: GER/UKI/12/0026473

PATIENT
  Age: 61 Year

DRUGS (13)
  1. OMEPRAZOLE (OMEPRAZOLE) [Suspect]
     Indication: DRUG USE FOR UNKNOWN INDICATION
     Route: 048
     Dates: start: 20110315
  2. PIPERACILLIN + TAZOBACTAM [Suspect]
     Dosage: 4.5 gm, 3 in 1 D, Intravenous drip
     Route: 041
     Dates: start: 20110421
  3. ADCAL D3 (LEKOVIT CA) [Concomitant]
  4. BECLOMETHASONE (BECLOMETASONE DIPROPIONATE) [Concomitant]
  5. CO-CODAMOL (PANADEINE CO) [Concomitant]
  6. CREON (PANCREATIN) [Concomitant]
  7. FERROUS FUMARATE [Concomitant]
  8. MOVICOL [Concomitant]
  9. NICORETTE (NICOTINE) [Concomitant]
  10. PARACETAMOL [Concomitant]
  11. TAMSULOSIN [Concomitant]
  12. TRAMADOL [Concomitant]
  13. ZINC [Concomitant]

REACTIONS (1)
  - Clostridium test positive [None]
